FAERS Safety Report 4682902-4 (Version None)
Quarter: 2005Q2

REPORT INFORMATION
  Report Type: 
  Country: None (occurrence: None)
  Receive Date: 20050531
  Receipt Date: 20040816
  Transmission Date: 20051028
  Serious: Yes (Hospitalization)
  Sender: FDA-Public Use
  Company Number: 200122261US

PATIENT
  Age: 31 Year
  Sex: Male

DRUGS (5)
  1. LOVENOX [Suspect]
     Indication: DEEP VEIN THROMBOSIS
     Dosage: 30 MG BID SC
     Route: 058
  2. CIPROFLOXACIN [Concomitant]
  3. BISACODYL [Concomitant]
  4. ACETAMINOPHEN [Concomitant]
  5. PSYLLIUM [Concomitant]

REACTIONS (2)
  - DERMATITIS BULLOUS [None]
  - EOSINOPHILIA [None]
